FAERS Safety Report 6299687-0 (Version None)
Quarter: 2009Q3

REPORT INFORMATION
  Report Type: 
  Country: None (occurrence: None)
  Receive Date: 20090803
  Receipt Date: 20090723
  Transmission Date: 20100115
  Serious: Yes (Hospitalization, Other)
  Sender: FDA-Public Use
  Company Number: 1-19270990

PATIENT
  Age: 39 Year
  Sex: Male
  Weight: 83.1443 kg

DRUGS (1)
  1. QUALAQUIN [Suspect]
     Indication: MALARIA
     Dosage: EVERY 8 HRS FOR 10 DAYS, ORAL
     Route: 048
     Dates: start: 20090628, end: 20090707

REACTIONS (4)
  - CONFUSIONAL STATE [None]
  - DYSPNOEA EXERTIONAL [None]
  - HAEMOLYTIC URAEMIC SYNDROME [None]
  - HEADACHE [None]
